FAERS Safety Report 9859678 (Version 1)
Quarter: 2014Q1

REPORT INFORMATION
  Report Type: Spontaneous
  Country: DK (occurrence: FR)
  Receive Date: 20140131
  Receipt Date: 20140131
  Transmission Date: 20141002
  Serious: Yes (Hospitalization)
  Sender: FDA-Public Use
  Company Number: FR-FRI-1000053329

PATIENT
  Age: 55 Year
  Sex: Female

DRUGS (7)
  1. ESCITALOPRAM [Suspect]
     Dosage: 1 DF
     Route: 048
  2. ESCITALOPRAM [Suspect]
     Dosage: OVERDOSE OF 13 TABLETS OF 20 MG
  3. TERALITHE [Suspect]
     Dosage: 1 DF
     Route: 048
  4. TERALITHE [Suspect]
     Dosage: OVERDOSE OF 6 OR 7 TABLETS OF 250 MG
  5. SERESTA [Suspect]
     Route: 048
  6. SERESTA [Suspect]
     Dosage: OVERDOSE OF AN UNKNOWN DOSE
     Route: 048
  7. HAVLANE [Suspect]
     Dosage: 1 DF
     Route: 048

REACTIONS (5)
  - Encephalitis [Recovered/Resolved]
  - Extrapyramidal disorder [Recovered/Resolved]
  - Electrocardiogram QT prolonged [Unknown]
  - Confusional state [Recovered/Resolved]
  - Intentional overdose [Recovered/Resolved]
